FAERS Safety Report 20203350 (Version 1)
Quarter: 2021Q4

REPORT INFORMATION
  Report Type: Spontaneous
  Country: CN (occurrence: CN)
  Receive Date: 20211218
  Receipt Date: 20211218
  Transmission Date: 20220303
  Serious: Yes (Hospitalization)
  Sender: FDA-Public Use
  Company Number: CN-JNJFOC-20211234755

PATIENT
  Age: 1 Year
  Sex: Female
  Weight: 9.3 kg

DRUGS (5)
  1. IBUPROFEN [Suspect]
     Active Substance: IBUPROFEN
     Indication: Pyrexia
     Dosage: WAS GIVEN 4 TIMES DURING THE FEBRILE EPISODE
     Route: 065
  2. CARNITINE [Suspect]
     Active Substance: CARNITINE
     Indication: Product used for unknown indication
     Dosage: 4 G/DAY
     Route: 065
  3. RIBOFLAVIN [Suspect]
     Active Substance: RIBOFLAVIN
     Indication: Product used for unknown indication
     Dosage: 300MG /DAY
     Route: 065
  4. PERAMIVIR [Suspect]
     Active Substance: PERAMIVIR
     Indication: Product used for unknown indication
     Dosage: 10 MG/ KG/DAY
     Route: 065
  5. DEXTROSE [Suspect]
     Active Substance: DEXTROSE
     Indication: Product used for unknown indication
     Dosage: FLUID SUPPLEMENTATION (5% GLUCOSE SOLUTION)
     Route: 065

REACTIONS (2)
  - Rhabdomyolysis [Recovered/Resolved]
  - Acute kidney injury [Recovered/Resolved]
